FAERS Safety Report 10062422 (Version 1)
Quarter: 2014Q2

REPORT INFORMATION
  Report Type: Spontaneous
  Country: US (occurrence: US)
  Receive Date: 20140407
  Receipt Date: 20140407
  Transmission Date: 20141212
  Serious: No
  Sender: FDA-Public Use
  Company Number: US-PFIZER INC-2014093496

PATIENT
  Age: 68 Year
  Sex: 0

DRUGS (11)
  1. MORPHINE SULFATE [Suspect]
     Dosage: UNK
  2. FELDENE [Suspect]
  3. ATENOLOL [Suspect]
     Dosage: UNK
  4. HYDROCHLOROTHIAZIDE [Suspect]
     Dosage: UNK
  5. ATARAX [Suspect]
     Dosage: UNK
  6. CODEINE [Suspect]
     Dosage: UNK
  7. WARFARIN [Suspect]
     Dosage: UNK
  8. ENALAPRIL [Suspect]
     Dosage: UNK
  9. PREVACID [Suspect]
     Dosage: UNK
  10. ALLEGRA [Suspect]
     Dosage: UNK
  11. LIDODERM PATCH [Suspect]
     Dosage: UNK

REACTIONS (1)
  - Drug hypersensitivity [Unknown]
